FAERS Safety Report 9865991 (Version 1)
Quarter: 2014Q1

REPORT INFORMATION
  Report Type: Spontaneous
  Country: US (occurrence: US)
  Receive Date: 20140203
  Receipt Date: 20140203
  Transmission Date: 20141002
  Serious: No
  Sender: FDA-Public Use
  Company Number: US-ALLERGAN-1314843US

PATIENT
  Age: 51 Year
  Sex: Female

DRUGS (3)
  1. RESTASIS [Suspect]
     Indication: DRY EYE
     Dosage: 2 GTT, BID
     Route: 047
  2. LOTEMAX [Concomitant]
     Indication: PRODUCT USED FOR UNKNOWN INDICATION
  3. REFRESH PLUS [Concomitant]
     Indication: DRY EYE

REACTIONS (1)
  - Dry eye [Not Recovered/Not Resolved]
